FAERS Safety Report 7790717-3 (Version None)
Quarter: 2011Q3

REPORT INFORMATION
  Report Type: 
  Country: None (occurrence: None)
  Receive Date: 20110930
  Receipt Date: 20090326
  Transmission Date: 20111222
  Serious: Yes (Hospitalization, Other)
  Sender: FDA-Public Use
  Company Number: PHHY2010TW17839

PATIENT
  Sex: Female

DRUGS (1)
  1. GLEEVEC [Suspect]
     Indication: GASTROINTESTINAL STROMAL TUMOUR
     Dosage: 400 MG DAILY
     Route: 048
     Dates: start: 20080124

REACTIONS (17)
  - DIARRHOEA [None]
  - PYREXIA [None]
  - DRY SKIN [None]
  - MUSCLE SPASMS [None]
  - MENSTRUATION IRREGULAR [None]
  - VOMITING [None]
  - SKIN DISORDER [None]
  - DEPRESSION [None]
  - DYSPHONIA [None]
  - ANAEMIA [None]
  - NASOPHARYNGITIS [None]
  - FATIGUE [None]
  - UTERINE DISORDER [None]
  - DEHYDRATION [None]
  - UTERINE LEIOMYOMA [None]
  - CHILLS [None]
  - COUGH [None]
